FAERS Safety Report 15499960 (Version 1)
Quarter: 2018Q4

REPORT INFORMATION
  Report Type: Spontaneous
  Country: US (occurrence: US)
  Receive Date: 20181008
  Receipt Date: 20181008
  Transmission Date: 20190205
  Serious: No
  Sender: FDA-Public Use
  Company Number: None

PATIENT
  Age: 55 Year
  Sex: Female

DRUGS (1)
  1. GLATIRAMER ACETATE. [Suspect]
     Active Substance: GLATIRAMER ACETATE
     Indication: MULTIPLE SCLEROSIS
     Dates: start: 20180201, end: 20180515

REACTIONS (4)
  - Renal impairment [None]
  - Product substitution issue [None]
  - Flank pain [None]
  - Urinary sediment [None]

NARRATIVE: CASE EVENT DATE: 20180301
